FAERS Safety Report 8358617-8 (Version None)
Quarter: 2012Q2

REPORT INFORMATION
  Report Type: 
  Country: None (occurrence: None)
  Receive Date: 20120514
  Receipt Date: 20120508
  Transmission Date: 20120825
  Serious: Yes (Hospitalization)
  Sender: FDA-Public Use
  Company Number: JP-ROCHE-1068029

PATIENT
  Sex: Male

DRUGS (11)
  1. ACTEMRA [Suspect]
     Indication: RHEUMATOID ARTHRITIS
     Route: 041
     Dates: start: 20090402, end: 20091209
  2. PREDNISOLONE [Concomitant]
     Route: 048
     Dates: start: 20090708, end: 20090721
  3. TERAZOSIN HCL [Concomitant]
     Indication: HYPERTENSION
     Route: 048
  4. HALCION [Concomitant]
     Indication: INSOMNIA
     Route: 048
  5. PREDNISOLONE [Concomitant]
     Route: 048
     Dates: start: 20090722
  6. FERROUS CITRATE [Concomitant]
     Indication: IRON DEFICIENCY ANAEMIA
     Route: 048
  7. ALLOPURINOL [Concomitant]
     Indication: GOUT
     Route: 048
  8. PREDNISOLONE [Concomitant]
     Indication: RHEUMATOID ARTHRITIS
     Route: 048
     Dates: end: 20090707
  9. AMLODIPINE BESYLATE [Concomitant]
     Indication: HYPERTENSION
     Route: 048
  10. ISONIAZID [Concomitant]
     Indication: ANTIBIOTIC PROPHYLAXIS
     Route: 048
     Dates: start: 20090318
  11. MUCOSTA [Concomitant]
     Indication: PROPHYLAXIS
     Route: 048

REACTIONS (1)
  - CEREBRAL INFARCTION [None]
